FAERS Safety Report 24086223 (Version 1)
Quarter: 2024Q3

REPORT INFORMATION
  Report Type: Spontaneous
  Country: KR (occurrence: KR)
  Receive Date: 20240712
  Receipt Date: 20240712
  Transmission Date: 20241017
  Serious: Yes (Other)
  Sender: TEVA
  Company Number: KR-TEVA-VS-3216917

PATIENT
  Sex: Male

DRUGS (9)
  1. DOXORUBICIN [Suspect]
     Active Substance: DOXORUBICIN
     Indication: Product used for unknown indication
     Dosage: VIAL
     Route: 042
     Dates: start: 20230419, end: 20230419
  2. DOXORUBICIN [Suspect]
     Active Substance: DOXORUBICIN
     Indication: Product used for unknown indication
     Dosage: VIAL, OTHER INJECTABLE DRUGS
     Route: 065
     Dates: start: 20230418, end: 20230420
  3. DOXORUBICIN [Suspect]
     Active Substance: DOXORUBICIN
     Indication: Product used for unknown indication
     Dosage: VIAL, HYPODERMIC MEDICATION
     Route: 065
     Dates: start: 20230419, end: 20230419
  4. DOXORUBICIN [Suspect]
     Active Substance: DOXORUBICIN
     Indication: Product used for unknown indication
     Dosage: VIAL
     Route: 042
     Dates: start: 20230419, end: 20230419
  5. DOXORUBICIN [Suspect]
     Active Substance: DOXORUBICIN
     Indication: Product used for unknown indication
     Route: 042
     Dates: start: 20230419, end: 20230419
  6. METHOTREXATE [Suspect]
     Active Substance: METHOTREXATE
     Indication: Product used for unknown indication
     Dosage: HYPODERMIC MEDICATION
     Route: 065
     Dates: start: 20230418, end: 20230420
  7. RITUXIMAB [Suspect]
     Active Substance: RITUXIMAB
     Indication: Product used for unknown indication
     Dosage: VIAL
     Route: 042
     Dates: start: 20230419, end: 20230419
  8. VINCRISTINE SULFATE [Suspect]
     Active Substance: VINCRISTINE SULFATE
     Indication: Product used for unknown indication
     Dosage: VIAL
     Route: 042
     Dates: start: 20230419, end: 20230419
  9. CYCLOPHOSPHAMIDE [Suspect]
     Active Substance: CYCLOPHOSPHAMIDE
     Indication: Product used for unknown indication
     Dosage: VIAL
     Route: 042
     Dates: start: 20230419, end: 20230419

REACTIONS (1)
  - Leukopenia [Recovered/Resolved]

NARRATIVE: CASE EVENT DATE: 20230428
